FAERS Safety Report 12370089 (Version 1)
Quarter: 2016Q2

REPORT INFORMATION
  Report Type: Spontaneous
  Country: US (occurrence: US)
  Receive Date: 20160516
  Receipt Date: 20160516
  Transmission Date: 20160815
  Serious: No
  Sender: FDA-Public Use
  Company Number: US-TAKEDA-2016TUS008105

PATIENT
  Age: 56 Year
  Sex: Female
  Weight: 85.71 kg

DRUGS (1)
  1. CONTRAVE [Suspect]
     Active Substance: BUPROPION HYDROCHLORIDE\NALTREXONE HYDROCHLORIDE
     Indication: WEIGHT CONTROL
     Dosage: 8/90 MG, QD
     Route: 048
     Dates: start: 20160123, end: 20160127

REACTIONS (3)
  - Coordination abnormal [Recovered/Resolved]
  - Tremor [Recovered/Resolved]
  - Dysarthria [Recovered/Resolved]

NARRATIVE: CASE EVENT DATE: 201601
